FAERS Safety Report 15743410 (Version 1)
Quarter: 2018Q4

REPORT INFORMATION
  Report Type: Report from Study
  Country: DE (occurrence: DE)
  Receive Date: 20181220
  Receipt Date: 20181220
  Transmission Date: 20190205
  Serious: Yes (Death)
  Sender: FDA-Public Use
  Company Number: DE-ACCORD-096478

PATIENT
  Age: 64 Year
  Sex: Male
  Weight: 135 kg

DRUGS (1)
  1. DOCETAXEL. [Suspect]
     Active Substance: DOCETAXEL
     Indication: BREAST CANCER
     Dosage: 60?MG?I.V.?WEEKLY
     Route: 042
     Dates: start: 20161018, end: 20161108

REACTIONS (1)
  - General physical condition abnormal [Fatal]

NARRATIVE: CASE EVENT DATE: 20161121
